FAERS Safety Report 9559836 (Version 2)
Quarter: 2013Q4

REPORT INFORMATION
  Report Type: Spontaneous
  Country: US (occurrence: None)
  Receive Date: 20130924
  Receipt Date: 20131008
  Transmission Date: 20140711
  Serious: Yes (Hospitalization)
  Sender: FDA-Public Use
  Company Number: 2013P1018853

PATIENT
  Age: 67 Year
  Sex: Female
  Weight: 99.79 kg

DRUGS (5)
  1. INFUMORPH [Suspect]
     Indication: MULTIPLE SCLEROSIS
     Route: 037
     Dates: end: 201308
  2. INFUMORPH [Suspect]
     Indication: BACK PAIN
     Route: 037
     Dates: end: 201308
  3. INFUMORPH [Suspect]
     Indication: SPINAL PAIN
     Route: 037
     Dates: end: 201308
  4. INFUMORPH [Suspect]
     Indication: SPONDYLITIS
     Route: 037
     Dates: end: 201308
  5. INFUMORPH [Suspect]
     Indication: ARTHRALGIA
     Route: 037
     Dates: end: 201308

REACTIONS (3)
  - Abdominal pain upper [None]
  - Confusional state [None]
  - Urinary tract infection [None]
